FAERS Safety Report 6242179-5 (Version None)
Quarter: 2009Q2

REPORT INFORMATION
  Report Type: 
  Country: None (occurrence: None)
  Receive Date: 20090624
  Receipt Date: 20090616
  Transmission Date: 20091009
  Serious: Yes (Death, Hospitalization)
  Sender: FDA-Public Use
  Company Number: FR-ELI_LILLY_AND_COMPANY-FR200906004013

PATIENT
  Age: 79 Year
  Sex: Male

DRUGS (1)
  1. FORTEO [Suspect]
     Indication: OSTEOPOROSIS
     Dosage: 20 D/F, DAILY (1/D)
     Route: 065
     Dates: start: 20090417, end: 20090515

REACTIONS (2)
  - BLOOD DISORDER [None]
  - GASTROINTESTINAL DISORDER [None]
